FAERS Safety Report 12415381 (Version 2)
Quarter: 2016Q2

REPORT INFORMATION
  Report Type: Spontaneous
  Country: US (occurrence: US)
  Receive Date: 20160530
  Receipt Date: 20160617
  Transmission Date: 20160815
  Serious: No
  Sender: FDA-Public Use
  Company Number: US-PFIZER INC-2016276320

PATIENT
  Age: 58 Year
  Sex: Female
  Weight: 88 kg

DRUGS (1)
  1. LYRICA [Suspect]
     Active Substance: PREGABALIN
     Indication: TRIGEMINAL NEURALGIA
     Dosage: 50 MG, 3X/DAY
     Route: 048

REACTIONS (3)
  - Vision blurred [Unknown]
  - Somnolence [Unknown]
  - Fatigue [Not Recovered/Not Resolved]
